FAERS Safety Report 23145368 (Version 2)
Quarter: 2023Q4

REPORT INFORMATION
  Report Type: Spontaneous
  Country: EG (occurrence: EG)
  Receive Date: 20231103
  Receipt Date: 20231113
  Transmission Date: 20240109
  Serious: Yes (Hospitalization, Other)
  Sender: FDA-Public Use
  Company Number: EG-NOVOPROD-1131718

PATIENT
  Age: 62 Year
  Sex: Female
  Weight: 83 kg

DRUGS (6)
  1. NOVORAPID [Suspect]
     Active Substance: INSULIN ASPART
     Indication: Diabetes mellitus
     Dosage: 15U MORNING AND 20U/25U AND 10U AT NIGHT STARTED 10 YEARS AGO
     Route: 058
  2. DAPAGLIFLOZIN [Concomitant]
     Active Substance: DAPAGLIFLOZIN
     Indication: Diabetes mellitus
     Dosage: UNK QD
     Dates: start: 202308
  3. EUTHYROX [Concomitant]
     Active Substance: LEVOTHYROXINE SODIUM
     Indication: Thyroid disorder
     Dosage: 1 TABLET (MORNING DAILY)
  4. GAPTIN [Concomitant]
     Indication: Neuralgia
     Dosage: 100 OR 300, 1 OR 2 TABLETS DAILY
  5. .ALPHA.-LIPOIC ACID [Concomitant]
     Active Substance: .ALPHA.-LIPOIC ACID
     Indication: Neuropathy peripheral
     Dosage: 1 TABLET DAILY FOR 10 YEARS
  6. LANTUS [Concomitant]
     Active Substance: INSULIN GLARGINE
     Indication: Diabetes mellitus
     Dosage: 40 IU, QD
     Route: 058

REACTIONS (6)
  - Fall [Unknown]
  - Pelvic fracture [Unknown]
  - Postoperative wound infection [Recovered/Resolved]
  - Cartilage injury [Not Recovered/Not Resolved]
  - Hyperglycaemia [Recovered/Resolved]
  - Sciatica [Not Recovered/Not Resolved]

NARRATIVE: CASE EVENT DATE: 20230101
